FAERS Safety Report 17153344 (Version 1)
Quarter: 2019Q4

REPORT INFORMATION
  Report Type: Spontaneous
  Country: US (occurrence: US)
  Receive Date: 20191213
  Receipt Date: 20191213
  Transmission Date: 20200122
  Serious: No
  Sender: FDA-Public Use
  Company Number: US-BAUSCH-BL-2019-062212

PATIENT
  Age: 78 Year
  Sex: Female

DRUGS (3)
  1. ENALAPRIL [Suspect]
     Active Substance: ENALAPRIL
     Indication: HYPERTENSION
     Route: 048
  2. CLONIDINE. [Concomitant]
     Active Substance: CLONIDINE
     Indication: PRODUCT USED FOR UNKNOWN INDICATION
     Route: 048
  3. ENALAPRIL [Suspect]
     Active Substance: ENALAPRIL
     Dosage: DID NOT HAVE ANY PROBLEMS WITH THE ENALAPRIL THAT SHE WAS CURRENTLY TAKING
     Route: 048

REACTIONS (3)
  - Nausea [Recovered/Resolved]
  - Product quality issue [Unknown]
  - Headache [Recovered/Resolved]
